FAERS Safety Report 8952536 (Version 1)
Quarter: 2012Q4

REPORT INFORMATION
  Report Type: 
  Country: US (occurrence: US)
  Receive Date: 20121205
  Receipt Date: 20121205
  Transmission Date: 20130627
  Serious: No
  Sender: FDA-Public Use
  Company Number: US-BAYER-2012-127329

PATIENT
  Sex: Female

DRUGS (2)
  1. MAGNEVIST [Suspect]
     Indication: MRI
     Dosage: UNK
     Dates: start: 20121130, end: 20121130
  2. MAGNEVIST [Suspect]
     Indication: CHRONIC BACK PAIN

REACTIONS (4)
  - Injection site pain [None]
  - Urticaria [None]
  - Pain [None]
  - Hypoaesthesia [None]
